FAERS Safety Report 12235950 (Version 2)
Quarter: 2016Q2

REPORT INFORMATION
  Report Type: Spontaneous
  Country: CH (occurrence: CH)
  Receive Date: 20160404
  Receipt Date: 20160429
  Transmission Date: 20160815
  Serious: Yes (Hospitalization)
  Sender: FDA-Public Use
  Company Number: CH-TEVA-646432ISR

PATIENT
  Age: 64 Year
  Sex: Male
  Weight: 56.2 kg

DRUGS (5)
  1. GEMCITABINE [Suspect]
     Active Substance: GEMCITABINE\GEMCITABINE HYDROCHLORIDE
     Dosage: DOSE 1000 MG, ONE ADMINISTRATION PER DAY ON DAY 1 AND DAY 8 , LAST ADMINISTRATION ON 29-DEC-2014
     Route: 041
     Dates: start: 201411, end: 20141229
  2. FORTECORTIN [Concomitant]
     Active Substance: DEXAMETHASONE
     Dosage: 6 MILLIGRAM DAILY; 4MG- 0 - 2MG-0
     Route: 048
  3. PANTOZOL [Concomitant]
     Active Substance: PANTOPRAZOLE SODIUM
     Dosage: 40 MILLIGRAM DAILY; ENTERIC, STRENGTH 40MG
     Route: 048
  4. FRAXIFORTE 0.6 ML, SOLUTION INJECTABLE [Suspect]
     Active Substance: NADROPARIN CALCIUM
     Dosage: 1 DOSAGE FORMS DAILY; EXACT START DATE OF THE THERAPY WAS UNKNOWN
     Route: 058
     Dates: start: 201411, end: 20150103
  5. CISPLATIN-TEVA [Suspect]
     Active Substance: CISPLATIN
     Dosage: ONE ADMINISTRATION ON DAY 1, LAST ADMINISTRATION ON 29-DEC-2014
     Route: 041
     Dates: start: 201411, end: 20141229

REACTIONS (2)
  - Thrombocytopenia [Recovered/Resolved]
  - Epistaxis [Recovered/Resolved]

NARRATIVE: CASE EVENT DATE: 20150103
